FAERS Safety Report 17129782 (Version 1)
Quarter: 2019Q4

REPORT INFORMATION
  Report Type: Spontaneous
  Country: US (occurrence: US)
  Receive Date: 20191209
  Receipt Date: 20191209
  Transmission Date: 20200122
  Serious: Yes (Death, Other)
  Sender: FDA-Public Use
  Company Number: US-SA-2019SA339966

PATIENT
  Age: 65 Year

DRUGS (1)
  1. DUPIXENT [Suspect]
     Active Substance: DUPILUMAB

REACTIONS (4)
  - Death [Fatal]
  - Sensory loss [Unknown]
  - Colitis ulcerative [Unknown]
  - Localised infection [Unknown]

NARRATIVE: CASE EVENT DATE: 2019
